FAERS Safety Report 5049792-1 (Version None)
Quarter: 2006Q3

REPORT INFORMATION
  Report Type: 
  Country: None (occurrence: None)
  Receive Date: 20060706
  Receipt Date: 20060626
  Transmission Date: 20061208
  Serious: Yes (Hospitalization, Other)
  Sender: FDA-Public Use
  Company Number: 2006081283

PATIENT
  Age: 63 Year
  Sex: Female
  Weight: 62.5964 kg

DRUGS (8)
  1. LIPITOR [Suspect]
     Indication: BLOOD CHOLESTEROL
     Dosage: 80 MG (80 MG, 1 IN 1 D); 4 - 10 YEARS AGO - 06/21/2006
     Dates: end: 20060621
  2. ZETIA [Concomitant]
  3. CARTIA XT [Concomitant]
  4. ASPIRIN [Concomitant]
  5. ALL OTHER THERAPEUTIC PRODUCTS (ALL OTHER THERAPEUTIC PRODUCTS) [Concomitant]
  6. VITAMINS (VITAMINS) [Concomitant]
  7. PREMARIN [Concomitant]
  8. CORGARD [Concomitant]

REACTIONS (7)
  - ANGIOPLASTY [None]
  - ARTHRALGIA [None]
  - MUSCULOSKELETAL PAIN [None]
  - NECK PAIN [None]
  - PAIN [None]
  - PAIN IN EXTREMITY [None]
  - VISUAL DISTURBANCE [None]
